FAERS Safety Report 20440433 (Version 1)
Quarter: 2022Q1

REPORT INFORMATION
  Report Type: Report from Study
  Country: US (occurrence: US)
  Receive Date: 20220207
  Receipt Date: 20220207
  Transmission Date: 20220423
  Serious: Yes (Other)
  Sender: FDA-Public Use
  Company Number: US-SAREPTA THERAPEUTICS INC.-SRP2022-002018

PATIENT
  Age: 7 Year
  Sex: Male

DRUGS (1)
  1. CASIMERSEN [Suspect]
     Active Substance: CASIMERSEN
     Indication: Product used for unknown indication
     Dosage: UNK
     Route: 042
     Dates: start: 20220107, end: 20220114

REACTIONS (4)
  - Erythema [Unknown]
  - Lip swelling [Unknown]
  - Wheezing [Unknown]
  - Throat clearing [Unknown]

NARRATIVE: CASE EVENT DATE: 20220114
